FAERS Safety Report 8388536-2 (Version None)
Quarter: 2012Q2

REPORT INFORMATION
  Report Type: 
  Country: None (occurrence: None)
  Receive Date: 20120525
  Receipt Date: 20120515
  Transmission Date: 20120825
  Serious: No
  Sender: FDA-Public Use
  Company Number: US-ASTRAZENECA-2012SE31656

PATIENT
  Sex: Female

DRUGS (9)
  1. SEROQUEL [Suspect]
     Route: 048
  2. SYMBICORT [Suspect]
     Indication: BRONCHITIS
     Dosage: 80/4.5 MCG FREQUENCY UNKNOWN
     Route: 055
     Dates: start: 20110101
  3. LUNESTA [Concomitant]
  4. MULTI-VITAMINS [Concomitant]
  5. ALBUTEROL [Concomitant]
  6. SEROQUEL [Suspect]
     Indication: SLEEP DISORDER
     Route: 048
  7. SEROQUEL [Suspect]
     Route: 048
  8. SEROQUEL [Suspect]
     Dosage: DAILY
     Route: 048
  9. AMBIENT [Concomitant]

REACTIONS (8)
  - MEDICATION RESIDUE [None]
  - HEADACHE [None]
  - STRESS [None]
  - DYSPEPSIA [None]
  - INITIAL INSOMNIA [None]
  - IMPAIRED WORK ABILITY [None]
  - BRONCHITIS [None]
  - OFF LABEL USE [None]
